FAERS Safety Report 20384866 (Version 1)
Quarter: 2022Q1

REPORT INFORMATION
  Report Type: Spontaneous
  Country: US (occurrence: US)
  Receive Date: 20220127
  Receipt Date: 20220127
  Transmission Date: 20220423
  Serious: No
  Sender: FDA-Public Use
  Company Number: US-INCYTE CORPORATION-2022IN000625

PATIENT

DRUGS (2)
  1. JAKAFI [Suspect]
     Active Substance: RUXOLITINIB
     Indication: Primary myelofibrosis
     Route: 065
  2. HYDREA [Concomitant]
     Active Substance: HYDROXYUREA
     Indication: Product used for unknown indication
     Route: 065

REACTIONS (5)
  - Fatigue [Unknown]
  - Depression [Unknown]
  - Asthenia [Unknown]
  - Hypersomnia [Unknown]
  - Weight increased [Unknown]
